FAERS Safety Report 7773290-5 (Version None)
Quarter: 2011Q3

REPORT INFORMATION
  Report Type: 
  Country: None (occurrence: None)
  Receive Date: 20110922
  Receipt Date: 20110914
  Transmission Date: 20111222
  Serious: Yes (Other)
  Sender: FDA-Public Use
  Company Number: DE-SANOFI-AVENTIS-2011SA060014

PATIENT
  Age: 42 Year
  Sex: Female

DRUGS (4)
  1. PANTOPRAZOLE [Concomitant]
  2. TOLPERISONE [Concomitant]
  3. PREDNISOLONE [Concomitant]
  4. HYDROXYCHLOROQUINE SULFATE [Suspect]
     Route: 048

REACTIONS (2)
  - WEIGHT DECREASED [None]
  - FOOD AVERSION [None]
